FAERS Safety Report 9678291 (Version 1)
Quarter: 2013Q4

REPORT INFORMATION
  Report Type: Report from Study
  Country: BR (occurrence: BR)
  Receive Date: 20131108
  Receipt Date: 20131108
  Transmission Date: 20140711
  Serious: Yes (Other)
  Sender: FDA-Public Use
  Company Number: BR-BAYER-2013-133720

PATIENT
  Age: 44 Year
  Sex: Female

DRUGS (3)
  1. BETASERON [Suspect]
     Indication: MULTIPLE SCLEROSIS
     Dosage: 0.25 ML, UNK
     Dates: start: 20131003, end: 201310
  2. BETASERON [Suspect]
     Indication: MULTIPLE SCLEROSIS
     Dosage: 0.5 ML, UNK
     Dates: start: 201310, end: 2013
  3. BETASERON [Suspect]
     Indication: MULTIPLE SCLEROSIS
     Dosage: 0.75 ML, UNK
     Route: 058
     Dates: start: 2013

REACTIONS (20)
  - Vaginal haemorrhage [None]
  - Malaise [None]
  - Chills [None]
  - Asthenia [None]
  - Pyrexia [None]
  - Decreased appetite [Not Recovered/Not Resolved]
  - Somnolence [None]
  - Feeling hot [Not Recovered/Not Resolved]
  - Balance disorder [Not Recovered/Not Resolved]
  - Muscular weakness [Not Recovered/Not Resolved]
  - Hypoaesthesia [Not Recovered/Not Resolved]
  - Hyperhidrosis [None]
  - Anxiety [Not Recovered/Not Resolved]
  - Feeling abnormal [Not Recovered/Not Resolved]
  - Respiration abnormal [Recovered/Resolved]
  - Headache [Recovered/Resolved]
  - Formication [Recovered/Resolved]
  - Fall [Recovered/Resolved]
  - Crying [Not Recovered/Not Resolved]
  - Fall [Recovered/Resolved]
